FAERS Safety Report 5864740-X (Version None)
Quarter: 2008Q3

REPORT INFORMATION
  Report Type: 
  Country: None (occurrence: None)
  Receive Date: 20080829
  Receipt Date: 20080618
  Transmission Date: 20090109
  Serious: No
  Sender: FDA-Public Use
  Company Number: US-BAYER-200826791NA

PATIENT
  Age: 29 Year
  Sex: Female
  Weight: 73 kg

DRUGS (1)
  1. YASMIN [Suspect]
     Indication: CONTRACEPTION
     Route: 048
     Dates: start: 20080101

REACTIONS (2)
  - METRORRHAGIA [None]
  - WITHDRAWAL BLEEDING IRREGULAR [None]
